FAERS Safety Report 23641870 (Version 1)
Quarter: 2024Q1

REPORT INFORMATION
  Report Type: Spontaneous
  Country: GB (occurrence: GB)
  Receive Date: 20240318
  Receipt Date: 20240318
  Transmission Date: 20240410
  Serious: Yes (Other)
  Sender: FDA-Public Use
  Company Number: None

PATIENT
  Age: 37 Year
  Sex: Male

DRUGS (7)
  1. OCRELIZUMAB [Suspect]
     Active Substance: OCRELIZUMAB
     Indication: Multiple sclerosis
     Route: 065
  2. CARNITINE [Concomitant]
     Active Substance: CARNITINE
     Dosage: OTC SUPPLEMENTS
  3. METHYLPREDNISOLONE [Concomitant]
     Active Substance: METHYLPREDNISOLONE
  4. CETIRIZINE [Concomitant]
     Active Substance: CETIRIZINE HYDROCHLORIDE
  5. MAGNESIUM [Concomitant]
     Active Substance: MAGNESIUM
     Dosage: OTC SUPPLEMENTS
  6. VITAMIN D3 [Concomitant]
     Active Substance: CHOLECALCIFEROL
  7. ACETAMINOPHEN [Concomitant]
     Active Substance: ACETAMINOPHEN

REACTIONS (3)
  - Diarrhoea [Recovered/Resolved]
  - Crohn^s disease [Unknown]
  - Faecal calprotectin increased [Unknown]
